FAERS Safety Report 7226688-8 (Version None)
Quarter: 2011Q1

REPORT INFORMATION
  Report Type: 
  Country: None (occurrence: None)
  Receive Date: 20110105
  Receipt Date: 20101220
  Transmission Date: 20110831
  Serious: Yes (Life-Threatening, Hospitalization)
  Sender: FDA-Public Use
  Company Number: 2009000211

PATIENT
  Age: 77 Year
  Sex: Female
  Weight: 63.2 kg

DRUGS (24)
  1. PROVENTIL [Suspect]
  2. ACETAMINOPHEN [Concomitant]
  3. FLUTICASONE PROPIONATE [Concomitant]
  4. LASIX [Concomitant]
  5. ERLOTINIB (ERLOTINIB) (TABLET) (ERLOTINIB) [Suspect]
     Indication: NON-SMALL CELL LUNG CANCER
     Dosage: (100 MG, QD), ORAL
     Route: 048
     Dates: start: 20080715, end: 20080916
  6. BEVACIZUMAB (INJECTION) [Suspect]
     Indication: NON-SMALL CELL LUNG CANCER
     Dosage: (Q3WKS), INTRAVENOUS
     Route: 042
     Dates: start: 20080715, end: 20080916
  7. ADVAIR [Suspect]
  8. CENTRUM (CENTRUM) [Concomitant]
  9. TIOTROPIUM [Concomitant]
  10. SALMETEROL (SALMETEROL) [Concomitant]
  11. HYDROCHLOROTHIAZIDE [Concomitant]
  12. PREDNISONE TAB [Concomitant]
  13. IPRATROPIUM BROMIDE [Concomitant]
  14. SPIRIVA [Suspect]
  15. ALBUTEROL [Concomitant]
  16. LOPERAMIDE [Concomitant]
  17. CLONAZEPAM [Concomitant]
  18. POTASSIUM CHLORIDE [Concomitant]
  19. PRILOSEC (OMEPRAZOLE) [Concomitant]
  20. DIGOXIN [Concomitant]
  21. ZESTRIL [Concomitant]
  22. IMODIUM [Suspect]
  23. NIFEDIPINE [Concomitant]
  24. FLUOXETINE [Concomitant]

REACTIONS (10)
  - HEART RATE INCREASED [None]
  - TRICUSPID VALVE INCOMPETENCE [None]
  - RESPIRATORY FAILURE [None]
  - PULMONARY HYPERTENSION [None]
  - CHILLS [None]
  - CARDIAC FAILURE CONGESTIVE [None]
  - ATRIAL FIBRILLATION [None]
  - BODY TEMPERATURE INCREASED [None]
  - HYPOXIA [None]
  - AORTIC VALVE INCOMPETENCE [None]
